FAERS Safety Report 11158042 (Version 1)
Quarter: 2015Q2

REPORT INFORMATION
  Report Type: Spontaneous
  Country: US (occurrence: None)
  Receive Date: 20150602
  Receipt Date: 20150602
  Transmission Date: 20150821
  Serious: Yes (Hospitalization)
  Sender: FDA-Public Use
  Company Number: None

PATIENT
  Age: 37 Year
  Sex: Female
  Weight: 81.7 kg

DRUGS (1)
  1. CISPLATIN. [Suspect]
     Active Substance: CISPLATIN
     Dates: end: 20150521

REACTIONS (4)
  - Nausea [None]
  - Dehydration [None]
  - Vomiting [None]
  - Blood creatinine abnormal [None]

NARRATIVE: CASE EVENT DATE: 20150526
